FAERS Safety Report 6835673-7 (Version None)
Quarter: 2010Q3

REPORT INFORMATION
  Report Type: 
  Country: None (occurrence: None)
  Receive Date: 20100713
  Receipt Date: 20100702
  Transmission Date: 20110219
  Serious: Yes (Other)
  Sender: FDA-Public Use
  Company Number: JP-PFIZER INC-2010083143

PATIENT

DRUGS (1)
  1. DOXAZOSIN MESYLATE [Suspect]
     Dosage: UNK
     Route: 048

REACTIONS (2)
  - EYE IRRITATION [None]
  - VISION BLURRED [None]
